FAERS Safety Report 20762693 (Version 2)
Quarter: 2022Q4

REPORT INFORMATION
  Report Type: Spontaneous
  Country: GB (occurrence: GB)
  Receive Date: 20220428
  Receipt Date: 20221024
  Transmission Date: 20230113
  Serious: Yes (Life-Threatening, Other)
  Sender: FDA-Public Use
  Company Number: None

PATIENT
  Age: 69 Year
  Sex: Male

DRUGS (19)
  1. PIPERACILLIN SODIUM\TAZOBACTAM SODIUM [Suspect]
     Active Substance: PIPERACILLIN SODIUM\TAZOBACTAM SODIUM
     Dosage: UNK
  2. EPINEPHRINE [Concomitant]
     Active Substance: EPINEPHRINE
     Dosage: UNK
  3. ATORVASTATIN [Concomitant]
     Active Substance: ATORVASTATIN
     Dosage: 40 MG, 1X/DAY AT NIGHT
     Dates: start: 20211201
  4. CHLORPHENIRAMINE MALEATE [Concomitant]
     Active Substance: CHLORPHENIRAMINE MALEATE
     Dosage: UNK MG
  5. CIPROFLOXACIN [Concomitant]
     Active Substance: CIPROFLOXACIN
     Dosage: 500 MG, 2X/DAY
     Dates: start: 20220209
  6. CODEINE [Concomitant]
     Active Substance: CODEINE
     Dosage: 30 MG, AS NEEDED (UP TO FOUR TIMES DAILY)
     Dates: start: 20220209
  7. FLUCLOXACILLIN [Concomitant]
     Active Substance: FLUCLOXACILLIN
     Dosage: 500 MG, 4X/DAY
     Dates: start: 20220105
  8. GLIMEPIRIDE [Concomitant]
     Active Substance: GLIMEPIRIDE
     Dosage: 4 MG, 1X/DAY
     Dates: start: 20211201
  9. INDAPAMIDE [Concomitant]
     Active Substance: INDAPAMIDE
     Dosage: 2.5 MG, 1X/DAY  EACH MORNING
     Dates: start: 20211201
  10. IRBESARTAN [Concomitant]
     Active Substance: IRBESARTAN
     Dosage: 150 MG, 1X/DAY
     Dates: start: 20211201
  11. METFORMIN [Concomitant]
     Active Substance: METFORMIN HYDROCHLORIDE
     Dosage: 1000 MG, 2X/DAY
     Dates: start: 20211201
  12. OMEPRAZOLE [Concomitant]
     Active Substance: OMEPRAZOLE
     Dosage: 20 MG, 1X/DAY
     Dates: start: 20211201
  13. OXYBUTYNIN [Concomitant]
     Active Substance: OXYBUTYNIN
     Dosage: INCREASED IF TOLERATED TO 5 MG TWICE DAILY, ADJUSTED ACCORDING TO RESPONSE.
     Dates: start: 20211201
  14. ACETAMINOPHEN [Concomitant]
     Active Substance: ACETAMINOPHEN
     Dosage: 500 MG. EVERY 4-6 HOURS UP TO FOUR TIMES A DAY
     Dates: start: 20210407
  15. ACETAMINOPHEN [Concomitant]
     Active Substance: ACETAMINOPHEN
     Dosage: UNK
  16. CALCIUM CARBONATE\SODIUM ALGINATE\SODIUM BICARBONATE [Concomitant]
     Active Substance: CALCIUM CARBONATE\SODIUM ALGINATE\SODIUM BICARBONATE
     Dosage: ONE OR TWO 5ML SPOONFULS TO BE TAKEN AFTER MEALS AND AT BEDTIME 500 ML - TAKES AT NIGHT
  17. SITAGLIPTIN [Concomitant]
     Active Substance: SITAGLIPTIN
     Dosage: 100 MG, 1X/DAY
     Dates: start: 20211201
  18. SOLIFENACIN [Concomitant]
     Active Substance: SOLIFENACIN
     Dosage: 10 MG, 1X/DAY
     Dates: start: 20211201
  19. TAMSULOSIN [Concomitant]
     Active Substance: TAMSULOSIN
     Dosage: 400 UG, 1X/DAY
     Dates: start: 20211201

REACTIONS (6)
  - Anaphylactic reaction [Recovered/Resolved]
  - Sepsis [Unknown]
  - Chest discomfort [Recovering/Resolving]
  - Dyspnoea [Recovering/Resolving]
  - Pruritus [Recovering/Resolving]
  - Wheezing [Recovering/Resolving]
